FAERS Safety Report 20986156 (Version 1)
Quarter: 2022Q2

REPORT INFORMATION
  Report Type: Spontaneous
  Country: US (occurrence: US)
  Receive Date: 20220621
  Receipt Date: 20220621
  Transmission Date: 20220721
  Serious: No
  Sender: FDA-Public Use
  Company Number: US-APOTEX-2022AP007869

PATIENT
  Age: 62 Year
  Sex: Female

DRUGS (9)
  1. DULOXETINE [Suspect]
     Active Substance: DULOXETINE
     Indication: Antidepressant therapy
     Dosage: UNK
     Route: 065
  2. BUPROPION [Suspect]
     Active Substance: BUPROPION
     Indication: Antidepressant therapy
     Dosage: UNK
     Route: 065
  3. MIRTAZAPINE [Suspect]
     Active Substance: MIRTAZAPINE
     Indication: Antidepressant therapy
     Dosage: UNK
     Route: 065
  4. PAROXETINE [Suspect]
     Active Substance: PAROXETINE
     Indication: Antidepressant therapy
     Dosage: UNK
     Route: 065
  5. ZOLPIDEM [Suspect]
     Active Substance: ZOLPIDEM TARTRATE
     Indication: Symptomatic treatment
     Dosage: UNK
     Route: 065
  6. OLANZAPINE [Suspect]
     Active Substance: OLANZAPINE
     Indication: Symptomatic treatment
     Dosage: UNK
     Route: 065
  7. SUVOREXANT [Suspect]
     Active Substance: SUVOREXANT
     Indication: Symptomatic treatment
     Dosage: UNK
     Route: 065
  8. SERTRALINE [Suspect]
     Active Substance: SERTRALINE HYDROCHLORIDE
     Indication: Antidepressant therapy
     Dosage: UNK
     Route: 065
  9. FLUOXETINE [Suspect]
     Active Substance: FLUOXETINE HYDROCHLORIDE
     Indication: Antidepressant therapy
     Dosage: UNK
     Route: 065

REACTIONS (3)
  - Drug intolerance [Unknown]
  - Anxiety [Recovered/Resolved]
  - Sedation [Unknown]
